FAERS Safety Report 8248034-3 (Version None)
Quarter: 2012Q1

REPORT INFORMATION
  Report Type: 
  Country: None (occurrence: None)
  Receive Date: 20120330
  Receipt Date: 20120322
  Transmission Date: 20120608
  Serious: Yes (Hospitalization)
  Sender: FDA-Public Use
  Company Number: IE-ROCHE-1049096

PATIENT
  Sex: Male
  Weight: 121.13 kg

DRUGS (14)
  1. SPIRIVA [Concomitant]
  2. XOLAIR [Suspect]
     Indication: ASTHMA
     Dates: start: 20110623, end: 20120119
  3. FLUTICASONE PROPIONATE/SALMETEROL [Concomitant]
  4. DURAGESIC-100 [Concomitant]
  5. SINGULAIR [Concomitant]
  6. ATROVENT [Concomitant]
  7. DELTACORTRIL [Concomitant]
  8. ALBUTEROL [Concomitant]
  9. BONIVA [Concomitant]
  10. PROSCAR [Concomitant]
  11. PHYLLOCONTIN [Concomitant]
  12. CETIRIZINE HCL [Concomitant]
  13. ASPIRIN [Concomitant]
  14. XENICAL [Concomitant]

REACTIONS (2)
  - ASTHMA [None]
  - DRUG INEFFECTIVE [None]
